FAERS Safety Report 11854985 (Version 2)
Quarter: 2016Q1

REPORT INFORMATION
  Report Type: Report from Study
  Country: US (occurrence: US)
  Receive Date: 20151221
  Receipt Date: 20160113
  Transmission Date: 20160526
  Serious: Yes (Other)
  Sender: FDA-Public Use
  Company Number: US-AMGEN-USASL2015134110

PATIENT
  Age: 63 Year
  Sex: Female

DRUGS (2)
  1. ENBREL [Suspect]
     Active Substance: ETANERCEPT
     Indication: RHEUMATOID ARTHRITIS
     Dosage: UNK
     Route: 065
  2. METHOTREXATE [Suspect]
     Active Substance: METHOTREXATE
     Indication: RHEUMATOID ARTHRITIS
     Dosage: UNK
     Route: 065

REACTIONS (7)
  - Arthropathy [Recovering/Resolving]
  - Walking aid user [Not Recovered/Not Resolved]
  - Fall [Unknown]
  - Wheelchair user [Unknown]
  - Arthralgia [Recovering/Resolving]
  - Tibia fracture [Unknown]
  - Myalgia [Unknown]

NARRATIVE: CASE EVENT DATE: 2015
